FAERS Safety Report 12006452 (Version 1)
Quarter: 2016Q1

REPORT INFORMATION
  Report Type: Report from Study
  Country: US (occurrence: US)
  Receive Date: 20160204
  Receipt Date: 20160204
  Transmission Date: 20160526
  Serious: Yes (Hospitalization, Other)
  Sender: FDA-Public Use
  Company Number: US-ABBVIE-16K-163-1547972-00

PATIENT
  Sex: Male
  Weight: 99.88 kg

DRUGS (4)
  1. HUMIRA [Suspect]
     Active Substance: ADALIMUMAB
     Indication: RHEUMATOID ARTHRITIS
     Route: 058
     Dates: start: 2008, end: 2016
  2. LISINOPRIL. [Concomitant]
     Active Substance: LISINOPRIL
     Indication: PRODUCT USED FOR UNKNOWN INDICATION
  3. ASPIRIN. [Concomitant]
     Active Substance: ASPIRIN
     Indication: PRODUCT USED FOR UNKNOWN INDICATION
  4. METHOTREXATE [Concomitant]
     Active Substance: METHOTREXATE
     Indication: PRODUCT USED FOR UNKNOWN INDICATION
     Dates: end: 2015

REACTIONS (11)
  - Dyspnoea exertional [Not Recovered/Not Resolved]
  - Cyanosis central [Recovered/Resolved]
  - Nasopharyngitis [Unknown]
  - Weight increased [Not Recovered/Not Resolved]
  - Decreased appetite [Recovering/Resolving]
  - Memory impairment [Not Recovered/Not Resolved]
  - Asthenia [Recovering/Resolving]
  - Fall [Recovered/Resolved]
  - Lymphoma [Recovering/Resolving]
  - Nausea [Recovered/Resolved]
  - Weight decreased [Recovered/Resolved]

NARRATIVE: CASE EVENT DATE: 2015
